FAERS Safety Report 7391667-7 (Version None)
Quarter: 2011Q2

REPORT INFORMATION
  Report Type: 
  Country: None (occurrence: None)
  Receive Date: 20110404
  Receipt Date: 20110323
  Transmission Date: 20111010
  Serious: Yes (Death, Other)
  Sender: FDA-Public Use
  Company Number: FR-PFIZER INC-2011070674

PATIENT
  Age: 88 Year
  Sex: Female

DRUGS (1)
  1. CORDARONE [Suspect]
     Indication: CARDIAC DISORDER
     Dosage: UNK
     Route: 048
     Dates: start: 20101201

REACTIONS (3)
  - HYPERTHYROIDISM [None]
  - CARDIOGENIC SHOCK [None]
  - ACUTE CORONARY SYNDROME [None]
